FAERS Safety Report 9593123 (Version 2)
Quarter: 2013Q4

REPORT INFORMATION
  Report Type: Spontaneous
  Country: GB (occurrence: GB)
  Receive Date: 20131004
  Receipt Date: 20131015
  Transmission Date: 20140711
  Serious: Yes (Other)
  Sender: FDA-Public Use
  Company Number: GB-RANBAXY-2013RR-73819

PATIENT
  Age: 45 Year
  Sex: Male
  Weight: 44 kg

DRUGS (4)
  1. LANSOPRAZOLE [Suspect]
     Indication: PRODUCT USED FOR UNKNOWN INDICATION
     Dosage: 30 MG, QD
     Route: 065
  2. FERROUS SULPHATE [Suspect]
     Indication: HAEMOGLOBIN DECREASED
     Dosage: 200 MG, TID
     Route: 065
  3. CIPROFLOXACIN [Suspect]
     Indication: EMPYEMA
     Dosage: A PROLONGED COURSE (4/52)
     Route: 065
  4. CO-AMOXICLAV [Suspect]
     Indication: EMPYEMA
     Dosage: UNK
     Route: 065

REACTIONS (4)
  - Hypozincaemia [Not Recovered/Not Resolved]
  - Selenium deficiency [Not Recovered/Not Resolved]
  - Magnesium deficiency [Not Recovered/Not Resolved]
  - Blood copper increased [Unknown]
